FAERS Safety Report 11213316 (Version 1)
Quarter: 2015Q2

REPORT INFORMATION
  Report Type: Spontaneous
  Country: IT (occurrence: IT)
  Receive Date: 20150623
  Receipt Date: 20150623
  Transmission Date: 20150821
  Serious: Yes (Hospitalization)
  Sender: FDA-Public Use
  Company Number: IT-BAYER-2015-363102

PATIENT
  Age: 78 Year
  Sex: Female

DRUGS (4)
  1. CARDIOASPIRIN [Suspect]
     Active Substance: ASPIRIN
     Indication: CARDIOVASCULAR EVENT PROPHYLAXIS
     Dosage: 100 MG, DAILY
     Route: 048
     Dates: start: 20150101, end: 20150403
  2. BREXIN [PIROXICAM] [Suspect]
     Active Substance: PIROXICAM BETADEX
     Indication: ARTHRALGIA
     Dosage: 20 MG, PRN
     Route: 048
     Dates: start: 20150101, end: 20150402
  3. VASORETIC [Concomitant]
     Active Substance: ENALAPRIL MALEATE\HYDROCHLOROTHIAZIDE
     Dosage: 1 DF, UNK
     Route: 048
  4. TENORMIN [Concomitant]
     Active Substance: ATENOLOL
     Dosage: 100 MG, UNK
     Route: 048

REACTIONS (2)
  - Melaena [Recovered/Resolved]
  - Anaemia [Recovered/Resolved]

NARRATIVE: CASE EVENT DATE: 20150403
